FAERS Safety Report 18907684 (Version 1)
Quarter: 2021Q1

REPORT INFORMATION
  Report Type: Spontaneous
  Country: US (occurrence: US)
  Receive Date: 20210217
  Receipt Date: 20210217
  Transmission Date: 20210420
  Serious: Yes (Other)
  Sender: FDA-Public Use
  Company Number: US-NOVEN PHARMACEUTICALS, INC.-2020US009350

PATIENT
  Age: 11 Year
  Sex: Male
  Weight: 39.91 kg

DRUGS (4)
  1. MELATONIN [Concomitant]
     Active Substance: MELATONIN
     Indication: PRODUCT USED FOR UNKNOWN INDICATION
     Dosage: 1 MG (MG AT BEDTIME)
  2. DAYTRANA [Suspect]
     Active Substance: METHYLPHENIDATE
     Dosage: 10 MG (1 TRANSDERMAL PATCH FOR 9 HOURS)
     Route: 062
     Dates: start: 20200709, end: 20200710
  3. METHYLPHENIDATE. [Concomitant]
     Active Substance: METHYLPHENIDATE
     Indication: ATTENTION DEFICIT HYPERACTIVITY DISORDER
     Dosage: 7.5 MG, Q2HR
     Route: 048
     Dates: start: 2018
  4. DAYTRANA [Suspect]
     Active Substance: METHYLPHENIDATE
     Indication: ATTENTION DEFICIT HYPERACTIVITY DISORDER
     Dosage: 30 MG (1 TRANSDERMAL PATCH FOR 9 HOURS)
     Route: 062
     Dates: start: 202006, end: 202006

REACTIONS (4)
  - Therapeutic product effect increased [Recovered/Resolved]
  - Psychomotor hyperactivity [Unknown]
  - Product quality issue [Recovered/Resolved]
  - Product administration error [Recovered/Resolved]

NARRATIVE: CASE EVENT DATE: 202006
